FAERS Safety Report 20219288 (Version 1)
Quarter: 2021Q4

REPORT INFORMATION
  Report Type: Spontaneous
  Country: FR (occurrence: FR)
  Receive Date: 20211222
  Receipt Date: 20211222
  Transmission Date: 20220303
  Serious: Yes (Other)
  Sender: FDA-Public Use
  Company Number: FR-CELGENE-FRA-20211205840

PATIENT
  Age: 55 Year
  Sex: Male
  Weight: 93 kg

DRUGS (24)
  1. THALIDOMIDE [Suspect]
     Active Substance: THALIDOMIDE
     Indication: Plasma cell myeloma
     Route: 048
     Dates: start: 20211104, end: 20211126
  2. BACTRIM [Suspect]
     Active Substance: SULFAMETHOXAZOLE\TRIMETHOPRIM
     Indication: Antifungal prophylaxis
     Dosage: 800/160MG 3X/SEMAINE
     Route: 048
     Dates: start: 20211104, end: 20211126
  3. MORPHINE SULFATE [Concomitant]
     Active Substance: MORPHINE SULFATE
     Indication: Product used for unknown indication
     Route: 065
     Dates: start: 20211104
  4. DEXAMETHASONE ACETATE [Concomitant]
     Active Substance: DEXAMETHASONE ACETATE
     Indication: Plasma cell myeloma
     Route: 058
     Dates: start: 20211104
  5. FOLIC ACID [Concomitant]
     Active Substance: FOLIC ACID
     Indication: Product used for unknown indication
     Route: 065
     Dates: start: 20211104
  6. ELIQUIS [Concomitant]
     Active Substance: APIXABAN
     Indication: Product used for unknown indication
     Route: 065
     Dates: start: 20211104
  7. OMEPRAZOLE [Concomitant]
     Active Substance: OMEPRAZOLE
     Indication: Product used for unknown indication
     Route: 065
     Dates: start: 20211104
  8. METOCLOPRAMIDE [Concomitant]
     Active Substance: METOCLOPRAMIDE
     Indication: Product used for unknown indication
     Route: 065
     Dates: start: 20211104
  9. SKENAN [Concomitant]
     Active Substance: MORPHINE SULFATE
     Indication: Product used for unknown indication
     Route: 065
     Dates: start: 20211104
  10. Macrogol lauryl ether [Concomitant]
     Indication: Product used for unknown indication
     Route: 065
     Dates: start: 20211104
  11. DARZALEX [Concomitant]
     Active Substance: DARATUMUMAB
     Indication: Plasma cell myeloma
     Route: 058
     Dates: start: 20211104, end: 20211105
  12. BORTEZOMIB [Concomitant]
     Active Substance: BORTEZOMIB
     Indication: Plasma cell myeloma
     Route: 058
     Dates: start: 20211104
  13. VALACYCLOVIR HYDROCHLORIDE [Concomitant]
     Active Substance: VALACYCLOVIR HYDROCHLORIDE
     Indication: Product used for unknown indication
     Route: 065
     Dates: start: 20211104
  14. ACETAMINOPHEN [Concomitant]
     Active Substance: ACETAMINOPHEN
     Indication: Product used for unknown indication
     Route: 065
     Dates: start: 20211104
  15. Maize starch [Concomitant]
     Indication: Product used for unknown indication
     Route: 065
  16. CETYL ALCOHOL [Concomitant]
     Active Substance: CETYL ALCOHOL
     Indication: Product used for unknown indication
     Route: 065
  17. ETHYLCELLULOSE [Concomitant]
     Indication: Product used for unknown indication
     Route: 065
  18. GELATIN [Concomitant]
     Active Substance: GELATIN
     Indication: Product used for unknown indication
     Route: 065
  19. SODIUM LAURILSULFATE [Concomitant]
     Indication: Product used for unknown indication
     Route: 065
  20. MORPHINE SULFATE [Concomitant]
     Active Substance: MORPHINE SULFATE
     Indication: Product used for unknown indication
     Route: 065
  21. SUCROSE [Concomitant]
     Active Substance: SUCROSE
     Indication: Product used for unknown indication
     Route: 065
  22. TALC [Concomitant]
     Active Substance: TALC
     Indication: Product used for unknown indication
     Route: 065
  23. TITANIUM DIOXIDE [Concomitant]
     Active Substance: TITANIUM DIOXIDE
     Indication: Product used for unknown indication
     Route: 065
  24. HYPROMELLOSES [Concomitant]
     Active Substance: HYPROMELLOSES
     Indication: Product used for unknown indication
     Route: 065

REACTIONS (2)
  - Rash morbilliform [Recovered/Resolved]
  - Oedema peripheral [Recovering/Resolving]

NARRATIVE: CASE EVENT DATE: 20211124
